FAERS Safety Report 6633152-3 (Version None)
Quarter: 2010Q1

REPORT INFORMATION
  Report Type: 
  Country: None (occurrence: None)
  Receive Date: 20100312
  Receipt Date: 20100303
  Transmission Date: 20100710
  Serious: Yes (Other)
  Sender: FDA-Public Use
  Company Number: JP-PFIZER INC-2009310242

PATIENT
  Age: 74 Year
  Sex: Female

DRUGS (1)
  1. SEIBULE [Suspect]
     Indication: DIABETES MELLITUS
     Dosage: 150 MG/DAY
     Route: 048
     Dates: start: 20090905, end: 20090919

REACTIONS (3)
  - HAEMORRHAGE SUBCUTANEOUS [None]
  - THROMBOCYTOPENIA [None]
  - VASCULAR PURPURA [None]
